FAERS Safety Report 23644383 (Version 1)
Quarter: 2024Q1

REPORT INFORMATION
  Report Type: Spontaneous
  Country: GB (occurrence: None)
  Receive Date: 20240318
  Receipt Date: 20240318
  Transmission Date: 20240409
  Serious: Yes (Other)
  Sender: FDA-Public Use
  Company Number: 2024A058366

PATIENT
  Age: 72 Year
  Sex: Female
  Weight: 75 kg

DRUGS (20)
  1. DAPAGLIFLOZIN [Suspect]
     Active Substance: DAPAGLIFLOZIN
     Dosage: 10
     Route: 048
     Dates: start: 20231023
  2. AMLODIPINE [Concomitant]
     Active Substance: AMLODIPINE BESYLATE
     Indication: Blood pressure measurement
     Dosage: 1
     Dates: start: 20230628
  3. ATORVASTATIN [Concomitant]
     Active Substance: ATORVASTATIN
     Dosage: 1
     Dates: start: 20230213
  4. BISOPROLOL [Concomitant]
     Active Substance: BISOPROLOL\BISOPROLOL FUMARATE
     Dosage: 1
     Dates: start: 20230213
  5. CLOPIDOGREL [Concomitant]
     Active Substance: CLOPIDOGREL BISULFATE
     Dosage: 1
     Dates: start: 20230213
  6. CYANOCOBALAMIN [Concomitant]
     Active Substance: CYANOCOBALAMIN
     Dosage: 1, FOR THREE MONTHS THEN REPEAT BLO...
     Dates: start: 20240227
  7. EMPAGLIFLOZIN [Concomitant]
     Active Substance: EMPAGLIFLOZIN
     Dosage: 1
     Dates: start: 20240227
  8. UNSPECIFIED INGREDIENT [Concomitant]
     Active Substance: UNSPECIFIED INGREDIENT
     Dosage: USE AS A SOAP SUBSTITITE AND AS A MOISTURISER F...
     Dates: start: 20240130, end: 20240227
  9. FERROUS SULFATE [Concomitant]
     Active Substance: FERROUS SULFATE
     Dosage: 1
     Dates: start: 20240227
  10. FEXOFENADINE [Concomitant]
     Active Substance: FEXOFENADINE HYDROCHLORIDE
     Dosage: 1
     Dates: start: 20240130, end: 20240229
  11. HYDROCORTISONE [Concomitant]
     Active Substance: HYDROCORTISONE
     Dosage: 1, APPLY
     Dates: start: 20240130, end: 20240206
  12. POLYETHYLENE GLYCOL 3350\POTASSIUM CHLORIDE\SODIUM BICARBONATE\SODIUM [Concomitant]
     Active Substance: POLYETHYLENE GLYCOL 3350\POTASSIUM CHLORIDE\SODIUM BICARBONATE\SODIUM CHLORIDE
     Dosage: 2-4
     Dates: start: 20230213
  13. LOSARTAN [Concomitant]
     Active Substance: LOSARTAN
     Dosage: 1
     Dates: start: 20230213
  14. MENTHOL [Concomitant]
     Active Substance: MENTHOL
     Indication: Pruritus
     Dosage: 1, APPLY OVER ANY LARGE AREAS OF ITCHING
     Dates: start: 20240130, end: 20240213
  15. METFORMIN [Concomitant]
     Active Substance: METFORMIN HYDROCHLORIDE
     Dosage: 4
     Dates: start: 20230213
  16. MIRTAZAPINE [Concomitant]
     Active Substance: MIRTAZAPINE
     Dosage: 1, AT NIGHT
     Dates: start: 20230213
  17. OMEPRAZOLE [Concomitant]
     Active Substance: OMEPRAZOLE
     Dosage: 2, TO CONTROL EXCESS STOMACH ACID
     Dates: start: 20230428
  18. CALCIUM CARBONATE\SODIUM ALGINATE\SODIUM BICARBONATE [Concomitant]
     Active Substance: CALCIUM CARBONATE\SODIUM ALGINATE\SODIUM BICARBONATE
     Dosage: 10 TO 20ML; AFTER MEALS AND BEFORE ...
     Dates: start: 20230213
  19. SODIUM PICOSULFATE [Concomitant]
     Active Substance: SODIUM PICOSULFATE
     Dosage: 10, AT NIGHT WHEN REQUIRED
     Dates: start: 20240208
  20. TOBRAMYCIN [Concomitant]
     Active Substance: TOBRAMYCIN
     Dosage: 1
     Dates: start: 20230213

REACTIONS (1)
  - Pruritus [Recovered/Resolved]
